FAERS Safety Report 11112110 (Version 10)
Quarter: 2019Q2

REPORT INFORMATION
  Report Type: Spontaneous
  Country: CA (occurrence: CA)
  Receive Date: 20150514
  Receipt Date: 20190405
  Transmission Date: 20190711
  Serious: Yes (Other)
  Sender: FDA-Public Use
  Company Number: CA-PFIZER INC-2015088470

PATIENT
  Age: 56 Year
  Sex: Female

DRUGS (5)
  1. XELJANZ [Suspect]
     Active Substance: TOFACITINIB CITRATE
     Dosage: 5 MG, 2X/DAY
     Route: 048
  2. METHOTREXATE SODIUM. [Suspect]
     Active Substance: METHOTREXATE SODIUM
     Indication: RHEUMATOID ARTHRITIS
     Dosage: UNK
  3. XELJANZ [Suspect]
     Active Substance: TOFACITINIB CITRATE
     Dosage: 5 MG, 2X/DAY
     Route: 048
     Dates: start: 20150622, end: 201511
  4. XELJANZ [Suspect]
     Active Substance: TOFACITINIB CITRATE
     Indication: RHEUMATOID ARTHRITIS
     Dosage: 5 MG, 2X/DAY
     Route: 048
     Dates: start: 20141228, end: 20150502
  5. SULFASALAZINE. [Concomitant]
     Active Substance: SULFASALAZINE
     Dosage: UNK

REACTIONS (16)
  - Drug ineffective [Unknown]
  - Pyrexia [Recovered/Resolved]
  - Weight increased [Not Recovered/Not Resolved]
  - Gastric infection [Recovering/Resolving]
  - Malaise [Recovered/Resolved]
  - Fatigue [Not Recovered/Not Resolved]
  - Foot fracture [Recovering/Resolving]
  - Influenza [Recovered/Resolved]
  - Localised infection [Not Recovered/Not Resolved]
  - Fall [Unknown]
  - Nasopharyngitis [Unknown]
  - Gastritis [Not Recovered/Not Resolved]
  - Wrist fracture [Recovering/Resolving]
  - Joint effusion [Unknown]
  - Lower respiratory tract infection [Recovering/Resolving]
  - White blood cell count increased [Unknown]

NARRATIVE: CASE EVENT DATE: 2015
